FAERS Safety Report 9456734 (Version 1)
Quarter: 2013Q3

REPORT INFORMATION
  Report Type: Spontaneous
  Country: JP (occurrence: None)
  Receive Date: 20130809
  Receipt Date: 20130809
  Transmission Date: 20140515
  Serious: Yes (Death, Other)
  Sender: FDA-Public Use
  Company Number: KAD201307-000901

PATIENT
  Age: 78 Year
  Sex: Male

DRUGS (8)
  1. AMPHOTERICIN B [Suspect]
     Indication: PENICILLIOSIS
  2. AMPHOTERICIN B [Suspect]
  3. ITRACONAZOLE [Suspect]
     Indication: PENICILLIOSIS
  4. ITRACONAZOLE [Suspect]
     Indication: ASPERGILLUS INFECTION
  5. VORICONAZOLE [Suspect]
     Indication: PENICILLIOSIS
  6. VORICONAZOLE [Suspect]
     Indication: ASPERGILLUS INFECTION
  7. FLUCONAZOLE (FLUCONAZOLE) [Suspect]
     Indication: ASPERGILLUS INFECTION
  8. FLUCONAZOLE (FLUCONAZOLE) [Suspect]
     Indication: PENICILLIOSIS

REACTIONS (4)
  - Renal failure [None]
  - Lung consolidation [None]
  - Pleural effusion [None]
  - Pneumonia [None]
